FAERS Safety Report 12952120 (Version 2)
Quarter: 2016Q4

REPORT INFORMATION
  Report Type: Spontaneous
  Country: PT (occurrence: PT)
  Receive Date: 20161117
  Receipt Date: 20161219
  Transmission Date: 20170207
  Serious: Yes (Life-Threatening, Hospitalization)
  Sender: FDA-Public Use
  Company Number: PT-SA-2016SA206169

PATIENT
  Age: 78 Year
  Sex: Female

DRUGS (7)
  1. PENTOXIFYLLINE. [Suspect]
     Active Substance: PENTOXIFYLLINE
     Indication: PERIPHERAL ISCHAEMIA
     Route: 065
  2. SILDENAFIL CITRATE. [Suspect]
     Active Substance: SILDENAFIL CITRATE
     Indication: PERIPHERAL ISCHAEMIA
     Route: 065
  3. ASPIRIN. [Suspect]
     Active Substance: ASPIRIN
     Indication: PERIPHERAL ISCHAEMIA
     Route: 065
  4. BOSENTAN. [Suspect]
     Active Substance: BOSENTAN
     Route: 065
  5. NIFEDIPINE. [Suspect]
     Active Substance: NIFEDIPINE
     Route: 065
  6. ENOXAPARIN SODIUM. [Suspect]
     Active Substance: ENOXAPARIN SODIUM
     Indication: PERIPHERAL ISCHAEMIA
     Route: 065
  7. SIMVASTATIN. [Suspect]
     Active Substance: SIMVASTATIN
     Indication: PERIPHERAL ISCHAEMIA
     Route: 065

REACTIONS (5)
  - Drug ineffective [Unknown]
  - Necrosis [Recovered/Resolved]
  - Peripheral ischaemia [Unknown]
  - Disease progression [Unknown]
  - Inappropriate schedule of drug administration [Unknown]
